FAERS Safety Report 17962913 (Version 1)
Quarter: 2020Q2

REPORT INFORMATION
  Report Type: Spontaneous
  Country: CN (occurrence: CN)
  Receive Date: 20200630
  Receipt Date: 20200630
  Transmission Date: 20200714
  Serious: Yes (Other)
  Sender: FDA-Public Use
  Company Number: CN-BRACCO-2020CN02537

PATIENT
  Age: 67 Year
  Sex: Female

DRUGS (1)
  1. IOPAMIDOL [Suspect]
     Active Substance: IOPAMIDOL
     Indication: COMPUTERISED TOMOGRAM
     Dosage: 2.0 ML /SEC
     Route: 040
     Dates: start: 20170708, end: 20170708

REACTIONS (8)
  - Injection site swelling [Unknown]
  - Peripheral swelling [Unknown]
  - Injection site pallor [Unknown]
  - Injection site vesicles [Recovering/Resolving]
  - Injection site pain [Unknown]
  - Infusion site warmth [Unknown]
  - Blister [Unknown]
  - Administration site extravasation [Recovering/Resolving]

NARRATIVE: CASE EVENT DATE: 20170708
